FAERS Safety Report 4770031-0 (Version None)
Quarter: 2005Q3

REPORT INFORMATION
  Report Type: 
  Country: None (occurrence: None)
  Receive Date: 20050915
  Receipt Date: 20050104
  Transmission Date: 20060218
  Serious: No
  Sender: FDA-Public Use
  Company Number: US-GLAXOSMITHKLINE-A0539242A

PATIENT
  Age: 72 Year
  Sex: Female

DRUGS (5)
  1. ABREVA [Suspect]
     Dates: start: 20050104
  2. WATER PILL [Concomitant]
  3. FOLIC ACID [Concomitant]
  4. AMITRIPTYLINE + CHLORDIAZEPOXIDE [Concomitant]
  5. ZESTRIL [Concomitant]

REACTIONS (4)
  - DRUG ADMINISTRATION ERROR [None]
  - DYSGEUSIA [None]
  - NERVOUSNESS [None]
  - PHARYNGOLARYNGEAL PAIN [None]
